FAERS Safety Report 4863255-5 (Version None)
Quarter: 2005Q4

REPORT INFORMATION
  Report Type: 
  Country: None (occurrence: None)
  Receive Date: 20051216
  Receipt Date: 20051207
  Transmission Date: 20060501
  Serious: Yes (Hospitalization)
  Sender: FDA-Public Use
  Company Number: 2005PV005489

PATIENT
  Age: 46 Year
  Sex: Female
  Weight: 113.3993 kg

DRUGS (12)
  1. BYETTA [Suspect]
     Indication: DIABETES MELLITUS NON-INSULIN-DEPENDENT
     Dosage: SEE IMAGE
     Route: 058
     Dates: start: 20050601, end: 20050701
  2. BYETTA [Suspect]
     Indication: DIABETES MELLITUS NON-INSULIN-DEPENDENT
     Dosage: SEE IMAGE
     Route: 058
     Dates: start: 20050701
  3. METFORMIN [Concomitant]
  4. AMARYL [Concomitant]
  5. AVANDIA [Concomitant]
  6. LANTUS [Concomitant]
  7. NOVOLOG [Concomitant]
  8. VITAMIN B-12 [Concomitant]
  9. LIPITOR [Concomitant]
  10. LEVOXYL [Concomitant]
  11. LISINOPRIL [Concomitant]
  12. IRON [Concomitant]

REACTIONS (9)
  - ABDOMINAL WALL DISORDER [None]
  - BLOOD GLUCOSE INCREASED [None]
  - FUNGAL INFECTION [None]
  - POSTOPERATIVE ABSCESS [None]
  - THROMBOSIS [None]
  - UTERINE HAEMORRHAGE [None]
  - UTERINE POLYP [None]
  - VAGINAL ABSCESS [None]
  - WEIGHT DECREASED [None]
